FAERS Safety Report 4833676-5 (Version None)
Quarter: 2005Q4

REPORT INFORMATION
  Report Type: 
  Country: None (occurrence: None)
  Receive Date: 20051116
  Receipt Date: 20051102
  Transmission Date: 20060501
  Serious: Yes (Other)
  Sender: FDA-Public Use
  Company Number: 2005151112

PATIENT
  Sex: Male

DRUGS (1)
  1. DRAMAMINE [Suspect]
     Indication: EUPHORIC MOOD
     Dosage: 17-18 TABLETS ONE TIME ONLY, ORAL
     Route: 048
     Dates: start: 20051031, end: 20051031

REACTIONS (3)
  - FEELING ABNORMAL [None]
  - HALLUCINATION [None]
  - INTENTIONAL OVERDOSE [None]
